FAERS Safety Report 6059266-7 (Version None)
Quarter: 2009Q1

REPORT INFORMATION
  Report Type: 
  Country: None (occurrence: None)
  Receive Date: 20090130
  Receipt Date: 20090121
  Transmission Date: 20090719
  Serious: Yes (Hospitalization)
  Sender: FDA-Public Use
  Company Number: US-WYE-H07760509

PATIENT
  Sex: Female
  Weight: 81.72 kg

DRUGS (2)
  1. NORPLANT SYSTEM [Suspect]
     Indication: CONTRACEPTION
     Dosage: FIRST SYSTEM: 6 CAPSULES
     Route: 023
     Dates: end: 20000101
  2. NORPLANT SYSTEM [Suspect]
     Dosage: 2ND SYSTEM: 6 CAPSULES
     Route: 023
     Dates: start: 20000101

REACTIONS (3)
  - MENSTRUATION IRREGULAR [None]
  - VAGINAL HAEMORRHAGE [None]
  - WEIGHT INCREASED [None]
